FAERS Safety Report 5091106-5 (Version None)
Quarter: 2006Q3

REPORT INFORMATION
  Report Type: 
  Country: None (occurrence: None)
  Receive Date: 20060829
  Receipt Date: 20060817
  Transmission Date: 20061208
  Serious: Yes (Hospitalization)
  Sender: FDA-Public Use
  Company Number: PHEH2006US10650

PATIENT
  Age: 6 Year
  Sex: Female
  Weight: 16.78 kg

DRUGS (2)
  1. FOCALIN XR [Suspect]
     Dosage: 10 MG, QD
     Route: 048
  2. STRATTERA [Suspect]
     Dosage: 25 MG, QD
     Route: 048

REACTIONS (2)
  - NEUTROPENIA [None]
  - WHITE BLOOD CELL COUNT DECREASED [None]
